FAERS Safety Report 4331959-9 (Version None)
Quarter: 2004Q1

REPORT INFORMATION
  Report Type: 
  Country: None (occurrence: None)
  Receive Date: 20040330
  Receipt Date: 20040308
  Transmission Date: 20041129
  Serious: Yes (Congenital Anomaly)
  Sender: FDA-Public Use
  Company Number: B0326031A

PATIENT
  Sex: Male

DRUGS (9)
  1. ZOFRAN [Suspect]
     Dosage: TRANSPLACENTARY
     Route: 064
  2. ZANTAC [Suspect]
     Dosage: TRANSPLACENTARY
     Route: 064
  3. COMPAZINE [Suspect]
     Dosage: TRANSPLACENTARY
     Route: 064
  4. DIPHENHYDRAMINE HCL [Suspect]
     Dosage: TRANSPLACENTARY
     Route: 064
  5. METOCLOPRAMIDE HCL [Suspect]
     Dosage: TRANSPLACENTARY
     Route: 064
  6. EMGEL [Suspect]
     Dosage: TRANSPLACENTARY
     Route: 064
  7. SIMETHICONE (FORMULATION UNKNOWN) (SIMETHICONE) [Suspect]
     Dosage: TRANSPLACENTARY
     Route: 064
  8. PROMETHAZINE HCL [Suspect]
     Dosage: TRANSPLACENTARY
     Route: 064
  9. IRON SUPPLEMENTS (FORMULATION UNKNOWN) (IRON SUPPLEMENTS) [Suspect]
     Dosage: TRANSPLACENTARY
     Route: 064

REACTIONS (17)
  - ANOMALY OF EXTERNAL EAR CONGENITAL [None]
  - APNOEA [None]
  - ASTHENIA [None]
  - BODY HEIGHT BELOW NORMAL [None]
  - BRADYCARDIA NEONATAL [None]
  - CERVICAL SPINAL STENOSIS [None]
  - CHONDRODYSTROPHY [None]
  - CONGENITAL MUSCULOSKELETAL ANOMALY [None]
  - CONGENITAL NOSE MALFORMATION [None]
  - FINGER HYPOPLASIA [None]
  - HYPERREFLEXIA [None]
  - MATERNAL DRUGS AFFECTING FOETUS [None]
  - MICROGNATHIA [None]
  - MOVEMENT DISORDER [None]
  - MULTIPLE CONGENITAL ABNORMALITIES [None]
  - NEONATAL RESPIRATORY DISTRESS SYNDROME [None]
  - PREMATURE BABY [None]
